FAERS Safety Report 4341481-1 (Version None)
Quarter: 2004Q2

REPORT INFORMATION
  Report Type: 
  Country: None (occurrence: None)
  Receive Date: 20040415
  Receipt Date: 20040405
  Transmission Date: 20050107
  Serious: Yes (Hospitalization, Other)
  Sender: FDA-Public Use
  Company Number: US-JNJFOC-20040401594

PATIENT
  Sex: Female

DRUGS (1)
  1. ORTHO TRI-CYCLEN [Suspect]
     Dosage: 1 DOSE(S), 1 IN 1 DAY ORAL
     Route: 048

REACTIONS (3)
  - BACK PAIN [None]
  - HAEMATURIA [None]
  - NEPHROLITHIASIS [None]
